FAERS Safety Report 8089032 (Version 9)
Quarter: 2013Q2

REPORT INFORMATION
  Report Type: Report from Study
  Country: CA (occurrence: CA)
  Receive Date: 20110812
  Receipt Date: 20130520
  Transmission Date: 20140414
  Serious: Yes (Other)
  Sender: FDA-Public Use
  Company Number: PHHY2011CA61594

PATIENT
  Age: 44 Year
  Sex: Female

DRUGS (3)
  1. GILENYA [Suspect]
     Indication: RELAPSING-REMITTING MULTIPLE SCLEROSIS
     Dosage: 0.5 MG, QD
     Route: 048
     Dates: start: 20110706, end: 20130404
  2. GILENYA [Suspect]
     Dosage: UNK
     Route: 048
     Dates: start: 20130514
  3. ZOLOFT [Concomitant]
     Dosage: 100 MG, QD

REACTIONS (16)
  - Maculopathy [Unknown]
  - Head discomfort [Recovered/Resolved]
  - Asthenopia [Unknown]
  - Eye disorder [Unknown]
  - Chest pain [Not Recovered/Not Resolved]
  - Hepatic pain [Unknown]
  - Abdominal pain [Not Recovered/Not Resolved]
  - Burning sensation [Recovering/Resolving]
  - Multiple sclerosis relapse [Recovering/Resolving]
  - Hypoaesthesia [Recovered/Resolved]
  - Fatigue [Not Recovered/Not Resolved]
  - Visual impairment [Unknown]
  - Paraesthesia [Recovered/Resolved]
  - Muscular weakness [Not Recovered/Not Resolved]
  - Limb discomfort [Unknown]
  - Eye pain [Unknown]
